FAERS Safety Report 9797575 (Version 1)
Quarter: 2014Q1

REPORT INFORMATION
  Report Type: Report from Study
  Country: GR (occurrence: GR)
  Receive Date: 20140106
  Receipt Date: 20140106
  Transmission Date: 20141002
  Serious: Yes (Other)
  Sender: FDA-Public Use
  Company Number: GR-ROCHE-1328118

PATIENT
  Age: 75 Year
  Sex: Female
  Weight: 73 kg

DRUGS (5)
  1. ROACTEMRA [Suspect]
     Indication: RHEUMATOID ARTHRITIS
     Dosage: DOSE- 760
     Route: 042
     Dates: start: 2010
  2. LASIX [Concomitant]
     Indication: OLIGURIA
     Dosage: EVERY MORNING
     Route: 065
     Dates: start: 2006
  3. TILDIEM [Concomitant]
     Dosage: 1 TAB IN MORNING AND 1 TAB IN EVENING
     Route: 065
     Dates: start: 1996
  4. CRESTOR [Concomitant]
     Indication: BLOOD CHOLESTEROL
  5. GLUCOPHAGE [Concomitant]
     Dosage: 2 TABS EVERY MORNING
     Route: 065
     Dates: start: 2001

REACTIONS (6)
  - Dementia [Unknown]
  - Asthma [Unknown]
  - Urinary tract infection [Unknown]
  - Haematuria [Unknown]
  - Sensory disturbance [Unknown]
  - Fall [Unknown]
